FAERS Safety Report 22021423 (Version 11)
Quarter: 2025Q3

REPORT INFORMATION
  Report Type: Report from Study
  Country: BR (occurrence: BR)
  Receive Date: 20230222
  Receipt Date: 20250806
  Transmission Date: 20251020
  Serious: Yes (Hospitalization, Other)
  Sender: TAKEDA
  Company Number: BR-TAKEDA-2023TUS000678

PATIENT
  Age: 43 Year
  Sex: Female

DRUGS (2)
  1. VEDOLIZUMAB [Suspect]
     Active Substance: VEDOLIZUMAB
     Indication: Colitis ulcerative
  2. VEDOLIZUMAB [Suspect]
     Active Substance: VEDOLIZUMAB

REACTIONS (11)
  - Intestinal stenosis [Recovered/Resolved]
  - Postoperative abscess [Unknown]
  - Post procedural complication [Unknown]
  - Colitis ulcerative [Unknown]
  - Stress [Unknown]
  - Product dose omission issue [Unknown]
  - Viral infection [Recovering/Resolving]
  - Inappropriate schedule of product administration [Recovering/Resolving]
  - Product distribution issue [Unknown]
  - Urinary tract infection [Unknown]
  - Product availability issue [Unknown]

NARRATIVE: CASE EVENT DATE: 20221226
